FAERS Safety Report 5228728-4 (Version None)
Quarter: 2007Q1

REPORT INFORMATION
  Report Type: 
  Country: None (occurrence: None)
  Receive Date: 20070131
  Receipt Date: 20070117
  Transmission Date: 20070707
  Serious: Yes (Life-Threatening, Hospitalization, Other)
  Sender: FDA-Public Use
  Company Number: ST-2006-009388

PATIENT
  Age: 46 Year
  Sex: Male

DRUGS (3)
  1. OLMETEC [Suspect]
     Indication: HYPERTENSION
     Dates: end: 20061113
  2. NORVASC [Suspect]
     Dates: end: 20061113
  3. ARTIST [Suspect]
     Dates: end: 20061113

REACTIONS (4)
  - CEREBRAL INFARCTION [None]
  - DEPRESSED LEVEL OF CONSCIOUSNESS [None]
  - HYPOTENSION [None]
  - RENAL DISORDER [None]
